FAERS Safety Report 21976163 (Version 1)
Quarter: 2023Q1

REPORT INFORMATION
  Report Type: Spontaneous
  Country: DE (occurrence: DE)
  Receive Date: 20230210
  Receipt Date: 20230210
  Transmission Date: 20230417
  Serious: Yes (Other)
  Sender: FDA-Public Use
  Company Number: DE-ORG100014127-2022001388

PATIENT
  Age: 51 Year
  Sex: Female

DRUGS (10)
  1. LYSODREN [Suspect]
     Active Substance: MITOTANE
     Indication: Adrenal gland cancer
     Dosage: 8 TABLETS DAILY, 4000 MG PER DAY AS MAXIMUM DOSE
     Route: 048
     Dates: start: 202207, end: 202211
  2. Pantoprazol-1A 40mg [Concomitant]
     Indication: Product used for unknown indication
     Dosage: 1-0-0-0
     Route: 048
  3. Colecalciferol (Dekristol) 1000 I.E [Concomitant]
     Indication: Product used for unknown indication
     Dosage: 1-0-0-0
     Route: 048
  4. Potassium chloride (Kalinor ret. P) 600 mg [Concomitant]
     Indication: Product used for unknown indication
     Dosage: 1-1-2-0
     Route: 048
  5. Torasemide (Torem) 10 mg [Concomitant]
     Indication: Product used for unknown indication
     Dosage: 1-0-0-0
     Route: 048
  6. Candesartancilexetil (Candesartan ratio) 16 mg [Concomitant]
     Indication: Product used for unknown indication
     Dosage: (0,5)-0-(0,5)-0
     Route: 048
  7. Rosuvastatin (Crestor) 10 mg [Concomitant]
     Indication: Product used for unknown indication
     Dosage: 0-0-1-0
     Route: 048
  8. Tramadolhydrochloride (Tramal long) 50 mg [Concomitant]
     Indication: Product used for unknown indication
     Dosage: 1-0-1-0
     Route: 048
  9. Mirtazapine (Mirtazapin-1A) [Concomitant]
     Indication: Product used for unknown indication
     Dosage: 0-0-0-(0,5)
     Route: 048
  10. Hydrocortisone 10 mg [Concomitant]
     Indication: Product used for unknown indication
     Dosage: 2-1-0
     Route: 048

REACTIONS (1)
  - Agranulocytosis [Recovered/Resolved]

NARRATIVE: CASE EVENT DATE: 20221017
